FAERS Safety Report 6804855-2 (Version None)
Quarter: 2010Q2

REPORT INFORMATION
  Report Type: 
  Country: None (occurrence: None)
  Receive Date: 20100628
  Receipt Date: 20070611
  Transmission Date: 20101027
  Serious: No
  Sender: FDA-Public Use
  Company Number: US-PFIZER INC-2007045471

PATIENT
  Sex: Male
  Weight: 68.181 kg

DRUGS (3)
  1. XALATAN [Suspect]
     Indication: GLAUCOMA
     Route: 031
     Dates: start: 20040101
  2. FOSAMAX [Concomitant]
     Dates: start: 20030101
  3. DOXAZOSIN MESYLATE [Concomitant]
     Dates: start: 20030101

REACTIONS (1)
  - EYE PRURITUS [None]
